FAERS Safety Report 23120730 (Version 1)
Quarter: 2023Q4

REPORT INFORMATION
  Report Type: Spontaneous
  Country: US (occurrence: None)
  Receive Date: 20231029
  Receipt Date: 20231029
  Transmission Date: 20240110
  Serious: Yes (Other)
  Sender: FDA-Public Use
  Company Number: US-ENDO-CASE-0037164

PATIENT
  Sex: Male

DRUGS (1)
  1. PERCOCET [Suspect]
     Active Substance: ACETAMINOPHEN\OXYCODONE HYDROCHLORIDE

REACTIONS (9)
  - Drug withdrawal syndrome neonatal [Unknown]
  - Behavioural therapy [Unknown]
  - Irritability [Unknown]
  - Insomnia [Unknown]
  - Attention deficit hyperactivity disorder [Unknown]
  - Attention deficit hyperactivity disorder [Unknown]
  - Behaviour disorder [Unknown]
  - Ill-defined disorder [Unknown]
  - Bipolar disorder [Unknown]
